FAERS Safety Report 15498951 (Version 4)
Quarter: 2018Q4

REPORT INFORMATION
  Report Type: Report from Study
  Country: None (occurrence: AU)
  Receive Date: 20181015
  Receipt Date: 20181122
  Transmission Date: 20190205
  Serious: Yes (Hospitalization, Other)
  Sender: FDA-Public Use
  Company Number: AU-ABBVIE-18K-008-2516433-00

PATIENT
  Age: 25 Year
  Sex: Male

DRUGS (3)
  1. HUMIRA [Suspect]
     Active Substance: ADALIMUMAB
     Dosage: ABOUT 5 DAYS LATER
     Route: 058
     Dates: start: 20181015, end: 20181015
  2. HUMIRA [Suspect]
     Active Substance: ADALIMUMAB
     Route: 058
     Dates: start: 20181108
  3. HUMIRA [Suspect]
     Active Substance: ADALIMUMAB
     Indication: CROHN^S DISEASE
     Dosage: LOADING DOSE
     Route: 058
     Dates: start: 20181010, end: 20181010

REACTIONS (16)
  - Head injury [Unknown]
  - Fall [Unknown]
  - Shock [Unknown]
  - Feeling cold [Unknown]
  - Visual impairment [Unknown]
  - Syncope [Unknown]
  - Crying [Unknown]
  - Emotional distress [Unknown]
  - Loss of consciousness [Recovered/Resolved]
  - Memory impairment [Unknown]
  - Injury [Unknown]
  - Emotional disorder [Unknown]
  - Hypoacusis [Unknown]
  - Nausea [Unknown]
  - Speech disorder [Unknown]
  - Confusional state [Unknown]

NARRATIVE: CASE EVENT DATE: 20181010
